FAERS Safety Report 4516355-3 (Version None)
Quarter: 2004Q4

REPORT INFORMATION
  Report Type: 
  Country: None (occurrence: None)
  Receive Date: 20041202
  Receipt Date: 20040416
  Transmission Date: 20050328
  Serious: No
  Sender: FDA-Public Use
  Company Number: US-GLAXOSMITHKLINE-A0507466A

PATIENT
  Age: 2 Year
  Sex: Female

DRUGS (2)
  1. AUGMENTIN ES-600 [Suspect]
     Indication: SINUSITIS
     Route: 048
  2. NO CONCURRENT MEDICATION [Concomitant]

REACTIONS (2)
  - DIARRHOEA [None]
  - PYREXIA [None]
